FAERS Safety Report 13061331 (Version 1)
Quarter: 2016Q4

REPORT INFORMATION
  Report Type: Spontaneous
  Country: US (occurrence: US)
  Receive Date: 20161226
  Receipt Date: 20161226
  Transmission Date: 20170207
  Serious: No
  Sender: FDA-Public Use
  Company Number: US-TEVA-716854ACC

PATIENT
  Age: 30 Year
  Sex: Female
  Weight: 62.65 kg

DRUGS (2)
  1. PLAN B ONE-STEP [Suspect]
     Active Substance: LEVONORGESTREL
     Indication: POST COITAL CONTRACEPTION
     Dates: start: 20161128, end: 20161128
  2. MAGNESIUM [Suspect]
     Active Substance: MAGNESIUM
     Route: 065

REACTIONS (3)
  - Diarrhoea [Unknown]
  - Constipation [Recovered/Resolved]
  - Abdominal discomfort [Unknown]

NARRATIVE: CASE EVENT DATE: 20161128
